FAERS Safety Report 10867221 (Version 1)
Quarter: 2015Q1

REPORT INFORMATION
  Report Type: Spontaneous
  Country: US (occurrence: None)
  Receive Date: 20150220
  Receipt Date: 20150220
  Transmission Date: 20150721
  Serious: Yes (Hospitalization)
  Sender: FDA-Public Use
  Company Number: None

PATIENT
  Age: 66 Year
  Sex: Male
  Weight: 113 kg

DRUGS (3)
  1. TAXOL [Suspect]
     Active Substance: PACLITAXEL
     Dosage: 246 MG, EVERY OTHER MONDAY
     Route: 042
  2. HYDROXUREA [Concomitant]
  3. 5FU [Suspect]
     Active Substance: FLUOROURACIL
     Dosage: 1450 MG, CONTINUOUS IV
     Route: 042

REACTIONS (1)
  - Febrile neutropenia [None]

NARRATIVE: CASE EVENT DATE: 20141225
